FAERS Safety Report 7612314-2 (Version None)
Quarter: 2011Q3

REPORT INFORMATION
  Report Type: 
  Country: None (occurrence: None)
  Receive Date: 20110715
  Receipt Date: 20110630
  Transmission Date: 20111222
  Serious: Yes (Hospitalization)
  Sender: FDA-Public Use
  Company Number: US-CELGENEUS-163-20785-11064057

PATIENT
  Sex: Female
  Weight: 45 kg

DRUGS (6)
  1. IGG [Concomitant]
     Route: 051
  2. THALOMID [Suspect]
     Indication: LYMPHOMA
     Dosage: 350 MILLIGRAM
     Route: 048
     Dates: start: 20100801
  3. THALOMID [Suspect]
     Indication: CASTLEMAN'S DISEASE
     Dosage: 100-300 MG
     Route: 048
     Dates: start: 20100901, end: 20110101
  4. THALOMID [Suspect]
     Dosage: 200 MILLIGRAM
     Route: 048
     Dates: start: 20110401
  5. AZITHROMYCIN [Concomitant]
     Route: 048
  6. CELEBREX [Concomitant]
     Route: 048

REACTIONS (1)
  - OBLITERATIVE BRONCHIOLITIS [None]
